FAERS Safety Report 18201063 (Version 1)
Quarter: 2020Q3

REPORT INFORMATION
  Report Type: Spontaneous
  Country: US (occurrence: US)
  Receive Date: 20200827
  Receipt Date: 20200827
  Transmission Date: 20201103
  Serious: No
  Sender: FDA-Public Use
  Company Number: US-RECORDATI RARE DISEASES-2089076

PATIENT
  Age: 39 Year
  Sex: Female

DRUGS (11)
  1. PERCOCET [Concomitant]
     Active Substance: ACETAMINOPHEN\OXYCODONE HYDROCHLORIDE
  2. PANTOPRAZOLE [Concomitant]
     Active Substance: PANTOPRAZOLE
  3. OMEGAN [Concomitant]
  4. ISTURISA [Suspect]
     Active Substance: OSILODROSTAT PHOSPHATE
     Indication: PITUITARY-DEPENDENT CUSHING^S SYNDROME
     Dates: start: 20200724
  5. MAGNESIUM [Concomitant]
     Active Substance: MAGNESIUM
  6. IMITREX [Concomitant]
     Active Substance: SUMATRIPTAN SUCCINATE
  7. OZEMPIC [Concomitant]
     Active Substance: SEMAGLUTIDE
  8. MORPHINE [Concomitant]
     Active Substance: MORPHINE
  9. CALCIUM [Concomitant]
     Active Substance: CALCIUM
  10. HUMIRA [Concomitant]
     Active Substance: ADALIMUMAB
  11. LEVOTHYROXINE. [Concomitant]
     Active Substance: LEVOTHYROXINE

REACTIONS (3)
  - Condition aggravated [Unknown]
  - Heart rate increased [Unknown]
  - Irritability [Unknown]

NARRATIVE: CASE EVENT DATE: 2020
